FAERS Safety Report 22602658 (Version 1)
Quarter: 2023Q2

REPORT INFORMATION
  Report Type: Spontaneous
  Country: DE (occurrence: None)
  Receive Date: 20230615
  Receipt Date: 20230615
  Transmission Date: 20230722
  Serious: Yes (Life-Threatening)
  Sender: FDA-Public Use
  Company Number: 2023A135573

PATIENT
  Age: 68 Year
  Sex: Female
  Weight: 78 kg

DRUGS (5)
  1. IMFINZI [Suspect]
     Active Substance: DURVALUMAB
     Indication: Neuroendocrine carcinoma
     Route: 042
     Dates: start: 202301
  2. METAMIZOLE [Concomitant]
     Active Substance: METAMIZOLE
     Route: 048
  3. CAPROS 10 [Concomitant]
     Route: 048
  4. DEXAMETHASON 4 [Concomitant]
     Route: 048
  5. CANDESARTAN 16 [Concomitant]
     Route: 048

REACTIONS (1)
  - Autoimmune hypothyroidism [Not Recovered/Not Resolved]

NARRATIVE: CASE EVENT DATE: 20230504
